FAERS Safety Report 5669872-7 (Version None)
Quarter: 2008Q1

REPORT INFORMATION
  Report Type: 
  Country: None (occurrence: None)
  Receive Date: 20080317
  Receipt Date: 20080305
  Transmission Date: 20080703
  Serious: Yes (Death)
  Sender: FDA-Public Use
  Company Number: US-PFIZER INC-2008006673

PATIENT
  Sex: Male

DRUGS (1)
  1. DILANTIN [Suspect]

REACTIONS (5)
  - DIZZINESS [None]
  - DRUG LEVEL DECREASED [None]
  - MALAISE [None]
  - MYOCARDIAL INFARCTION [None]
  - VISION BLURRED [None]
